FAERS Safety Report 16000614 (Version 3)
Quarter: 2019Q2

REPORT INFORMATION
  Report Type: Spontaneous
  Country: US (occurrence: US)
  Receive Date: 20190225
  Receipt Date: 20190524
  Transmission Date: 20190711
  Serious: No
  Sender: FDA-Public Use
  Company Number: US-PFIZER INC-2019076848

PATIENT
  Age: 72 Year
  Sex: Female

DRUGS (2)
  1. CELONTIN [Suspect]
     Active Substance: METHSUXIMIDE
     Indication: SEIZURE
     Dosage: 1800 MG, DAILY (6 CAPSULES DAILY IN DIVIDED DOSES FOR ATLEAST 16 YEARS)
  2. CELONTIN [Suspect]
     Active Substance: METHSUXIMIDE
     Indication: CLONIC CONVULSION

REACTIONS (5)
  - Fatigue [Unknown]
  - Asthenia [Unknown]
  - Electroencephalogram abnormal [Unknown]
  - Therapeutic product effect incomplete [Unknown]
  - Stress [Unknown]
